FAERS Safety Report 11448582 (Version 3)
Quarter: 2015Q4

REPORT INFORMATION
  Report Type: Spontaneous
  Country: GB (occurrence: GB)
  Receive Date: 20150902
  Receipt Date: 20151009
  Transmission Date: 20160304
  Serious: Yes (Hospitalization, Disabling, Other)
  Sender: FDA-Public Use
  Company Number: GB-BAYER-2015-410059

PATIENT
  Age: 45 Year
  Sex: Female
  Weight: 98 kg

DRUGS (3)
  1. MIRENA [Suspect]
     Active Substance: LEVONORGESTREL
     Indication: MENORRHAGIA
     Dosage: UNK
     Dates: start: 20120725
  2. GTN [Concomitant]
     Active Substance: NITROGLYCERIN
  3. DILTIAZEM [Concomitant]
     Active Substance: DILTIAZEM
     Dosage: 90 MG, BID
     Route: 048
     Dates: start: 20131216

REACTIONS (12)
  - Psychiatric symptom [None]
  - Unresponsive to stimuli [None]
  - Malaise [None]
  - Malaise [None]
  - Nervousness [None]
  - Activities of daily living impaired [None]
  - Loss of consciousness [Not Recovered/Not Resolved]
  - Seizure [Not Recovered/Not Resolved]
  - Anxiety [None]
  - Seizure [Not Recovered/Not Resolved]
  - Eye movement disorder [None]
  - Blood pressure increased [None]

NARRATIVE: CASE EVENT DATE: 20141121
